FAERS Safety Report 21328308 (Version 1)
Quarter: 2022Q3

REPORT INFORMATION
  Report Type: Spontaneous
  Country: GB (occurrence: GB)
  Receive Date: 20220913
  Receipt Date: 20220913
  Transmission Date: 20221026
  Serious: Yes (Hospitalization, Other)
  Sender: FDA-Public Use
  Company Number: GB-ABBVIE-22K-167-4537268-00

PATIENT
  Age: 50 Year
  Sex: Female

DRUGS (2)
  1. VENETOCLAX [Suspect]
     Active Substance: VENETOCLAX
     Indication: Chronic lymphocytic leukaemia
     Route: 048
     Dates: start: 202103
  2. OBINUTUZUMAB [Suspect]
     Active Substance: OBINUTUZUMAB
     Indication: Product used for unknown indication
     Route: 065

REACTIONS (8)
  - Acute kidney injury [Unknown]
  - Loss of consciousness [Unknown]
  - Tumour lysis syndrome [Unknown]
  - Hypotension [Unknown]
  - Nausea [Unknown]
  - Hypophagia [Unknown]
  - Vomiting [Unknown]
  - Oxygen saturation decreased [Unknown]
